FAERS Safety Report 24155855 (Version 1)
Quarter: 2024Q3

REPORT INFORMATION
  Report Type: Spontaneous
  Country: US (occurrence: US)
  Receive Date: 20240731
  Receipt Date: 20240731
  Transmission Date: 20241016
  Serious: Yes (Death, Other)
  Sender: MERCK
  Company Number: US-009507513-2407USA015009

PATIENT
  Age: 67 Year
  Sex: Male
  Weight: 69.66 kg

DRUGS (2)
  1. WELIREG [Suspect]
     Active Substance: BELZUTIFAN
     Indication: Renal cancer
     Dosage: 40 MILLIGRAM
     Route: 048
  2. CABOMETYX [Suspect]
     Active Substance: CABOZANTINIB S-MALATE
     Indication: Renal cancer
     Dosage: 60 MILLIGRAM, QD
     Route: 048
     Dates: start: 202311

REACTIONS (4)
  - Death [Fatal]
  - Decreased appetite [Unknown]
  - Drug ineffective [Unknown]
  - Incorrect dose administered [Unknown]

NARRATIVE: CASE EVENT DATE: 20240516
